FAERS Safety Report 21026939 (Version 1)
Quarter: 2022Q2

REPORT INFORMATION
  Report Type: Spontaneous
  Country: US (occurrence: None)
  Receive Date: 20220629
  Receipt Date: 20220629
  Transmission Date: 20220721
  Serious: No
  Sender: FDA-Public Use
  Company Number: None

PATIENT
  Age: 61 Year
  Sex: Female
  Weight: 87.75 kg

DRUGS (1)
  1. NURTEC ODT [Suspect]
     Active Substance: RIMEGEPANT SULFATE
     Indication: Migraine
     Dosage: FREQUENCY : EVERY OTHER DAY;?
     Route: 060
     Dates: start: 20220623, end: 20220625

REACTIONS (5)
  - Nausea [None]
  - Vomiting [None]
  - Syncope [None]
  - Fall [None]
  - Face injury [None]

NARRATIVE: CASE EVENT DATE: 20220625
